FAERS Safety Report 7034951-9 (Version None)
Quarter: 2010Q4

REPORT INFORMATION
  Report Type: 
  Country: None (occurrence: None)
  Receive Date: 20101008
  Receipt Date: 20100927
  Transmission Date: 20110411
  Serious: Yes (Hospitalization)
  Sender: FDA-Public Use
  Company Number: JP-ROCHE-730715

PATIENT
  Age: 72 Year
  Sex: Male

DRUGS (4)
  1. AVASTIN [Suspect]
     Indication: LUNG ADENOCARCINOMA
     Route: 041
     Dates: start: 20100623
  2. CARBOPLATIN [Concomitant]
     Dosage: NOTE: DOSAGE IS UNCERTAIN.
     Route: 041
  3. ALIMTA [Concomitant]
     Dosage: NOTE: DOSAGE IS UNCERTAIN.
     Route: 041
  4. ANALGESIC OR NSAID [Concomitant]
     Dosage: NOTE: DOSAGE IS UNCERTAIN; DRUG NAME REPORTED :ANTIPYRETICS, ANALGESICS AND ANTI-INFLAMMATORY AGENTS
     Route: 065

REACTIONS (3)
  - ANAL ABSCESS [None]
  - DEHYDRATION [None]
  - RENAL IMPAIRMENT [None]
